FAERS Safety Report 16044188 (Version 1)
Quarter: 2019Q1

REPORT INFORMATION
  Report Type: Spontaneous
  Country: IT (occurrence: IT)
  Receive Date: 20190306
  Receipt Date: 20190306
  Transmission Date: 20190418
  Serious: Yes (Other)
  Sender: FDA-Public Use
  Company Number: IT-BAUSCH-BL-2019-006284

PATIENT
  Age: 36 Year
  Sex: Female

DRUGS (4)
  1. XENAZINA 25 MG COMPRESSE [Suspect]
     Active Substance: TETRABENAZINE
     Indication: OFF LABEL USE
     Route: 065
     Dates: start: 20190216, end: 20190218
  2. XENAZINA 25 MG COMPRESSE [Suspect]
     Active Substance: TETRABENAZINE
     Route: 065
     Dates: start: 20190219
  3. XENAZINA 25 MG COMPRESSE [Suspect]
     Active Substance: TETRABENAZINE
     Indication: COMPLEX REGIONAL PAIN SYNDROME
     Route: 065
     Dates: start: 20190213, end: 20190215
  4. CLONAZEPAM. [Concomitant]
     Active Substance: CLONAZEPAM
     Indication: EPILEPSY

REACTIONS (5)
  - Macule [Recovered/Resolved]
  - Diarrhoea [Not Recovered/Not Resolved]
  - Off label use [Unknown]
  - Prescribed overdose [Unknown]
  - Angioedema [Recovered/Resolved]

NARRATIVE: CASE EVENT DATE: 20190213
